FAERS Safety Report 13216148 (Version 1)
Quarter: 2017Q1

REPORT INFORMATION
  Report Type: Spontaneous
  Country: US (occurrence: US)
  Receive Date: 20170209
  Receipt Date: 20170209
  Transmission Date: 20170428
  Serious: No
  Sender: FDA-Public Use
  Company Number: US-AMGEN-USASP2017020038

PATIENT
  Sex: Female
  Weight: 45.35 kg

DRUGS (5)
  1. ENBREL [Suspect]
     Active Substance: ETANERCEPT
     Indication: PSORIASIS
     Dosage: 50 MG, 2 TIMES/WK
     Route: 065
     Dates: start: 201612
  2. ZOLOFT [Concomitant]
     Active Substance: SERTRALINE HYDROCHLORIDE
     Dosage: UNK
  3. AFRIN [Suspect]
     Active Substance: OXYMETAZOLINE
     Indication: EPISTAXIS
     Dosage: UNK
     Route: 065
  4. ENBREL [Suspect]
     Active Substance: ETANERCEPT
     Dosage: 40 MG, WEEKLY
     Route: 065
     Dates: start: 201701
  5. VISTARIL [Concomitant]
     Active Substance: HYDROXYZINE PAMOATE
     Dosage: UNK

REACTIONS (7)
  - Protein total abnormal [Unknown]
  - Blood count abnormal [Unknown]
  - Drug ineffective [Unknown]
  - Epistaxis [Unknown]
  - Off label use [Unknown]
  - Weight decreased [Unknown]
  - White blood cell count abnormal [Unknown]
